FAERS Safety Report 9892680 (Version 1)
Quarter: 2014Q1

REPORT INFORMATION
  Report Type: Spontaneous
  Country: US (occurrence: US)
  Receive Date: 20140212
  Receipt Date: 20140212
  Transmission Date: 20141002
  Serious: Yes (Other)
  Sender: FDA-Public Use
  Company Number: US-BAXTER-2014BAX006924

PATIENT
  Age: 31 Year
  Sex: Male

DRUGS (6)
  1. CEFEPIME INJECTION [Suspect]
     Indication: CELLULITIS
     Route: 065
  2. CEFEPIME INJECTION [Suspect]
     Indication: EVIDENCE BASED TREATMENT
  3. VANCOMYCIN INJECTION, USP [Suspect]
     Indication: CELLULITIS
     Route: 042
  4. VANCOMYCIN INJECTION, USP [Suspect]
     Indication: EVIDENCE BASED TREATMENT
  5. METRONIDAZOLE [Suspect]
     Indication: CELLULITIS
     Route: 065
  6. METRONIDAZOLE [Suspect]
     Indication: EVIDENCE BASED TREATMENT

REACTIONS (1)
  - Renal tubular necrosis [Recovered/Resolved]
